FAERS Safety Report 9725238 (Version 1)
Quarter: 2013Q4

REPORT INFORMATION
  Report Type: Spontaneous
  Country: US (occurrence: None)
  Receive Date: 20131129
  Receipt Date: 20131129
  Transmission Date: 20140711
  Serious: Yes (Other)
  Sender: FDA-Public Use
  Company Number: SYM-2013-13089

PATIENT
  Age: 85 Year
  Sex: Female

DRUGS (1)
  1. TIMOLOL [Suspect]
     Indication: INTRAOCULAR PRESSURE INCREASED
     Dosage: 1 DROP EACH EYE, 2 IN 1 D, OPHTHALMIC
     Route: 047
     Dates: start: 2012

REACTIONS (4)
  - Visual impairment [None]
  - Visual field defect [None]
  - Product physical consistency issue [None]
  - Incorrect dose administered [None]
